FAERS Safety Report 8783507 (Version 2)
Quarter: 2013Q3

REPORT INFORMATION
  Report Type: Report from Study
  Country: JP (occurrence: JP)
  Receive Date: 20120913
  Receipt Date: 20130924
  Transmission Date: 20140515
  Serious: Yes (Hospitalization)
  Sender: FDA-Public Use
  Company Number: JP-VERTEX PHARMACEUTICAL INC.-2012-020723

PATIENT
  Age: 61 Year
  Sex: Male

DRUGS (14)
  1. VX-950 (TELAPREVIR) [Suspect]
     Indication: CHRONIC HEPATITIS C
     Dosage: 2250 MG, QD
     Route: 048
     Dates: start: 20120306, end: 20120529
  2. REBETOL [Suspect]
     Indication: CHRONIC HEPATITIS C
     Dosage: 600 MG, UNK
     Route: 048
     Dates: start: 20120306, end: 20120326
  3. REBETOL [Suspect]
     Dosage: 400 MG, UNK
     Route: 048
     Dates: start: 20120327, end: 20120409
  4. REBETOL [Suspect]
     Dosage: 200 MG, UNK
     Route: 048
     Dates: start: 20120410, end: 20120605
  5. PEGINTRON [Suspect]
     Indication: CHRONIC HEPATITIS C
     Dosage: 1.5 ?G/KG, QW
     Route: 058
     Dates: start: 20120306, end: 20120529
  6. URSO [Concomitant]
     Dosage: 600 MG, QD
     Route: 048
     Dates: end: 20120313
  7. GLUCOBAY [Concomitant]
     Dosage: 300 MG, UNK
     Route: 048
  8. PARIET [Concomitant]
     Dosage: 10 MG, UNK
     Route: 048
  9. MUCOSTA [Concomitant]
     Dosage: 300 MG, UNK
     Route: 048
  10. LOXONIN [Concomitant]
     Dosage: 60 MG/KG, PRN
     Route: 048
  11. DEPAS [Concomitant]
     Dosage: UNK, PRN
     Route: 048
  12. DEPAS [Concomitant]
     Dosage: 0.5 MG, UNK
     Route: 048
  13. LENDORMIN [Concomitant]
     Dosage: 0.25 MG, QD
     Route: 048
  14. ALLEGRA [Concomitant]
     Dosage: 120 MG, QD
     Route: 048

REACTIONS (2)
  - Psychiatric symptom [Recovered/Resolved]
  - Depression [Recovered/Resolved]
